FAERS Safety Report 6163701-3 (Version None)
Quarter: 2009Q2

REPORT INFORMATION
  Report Type: 
  Country: None (occurrence: None)
  Receive Date: 20090420
  Receipt Date: 20090420
  Transmission Date: 20091009
  Serious: No
  Sender: FDA-Public Use
  Company Number: None

PATIENT
  Age: 47 Year
  Sex: Female
  Weight: 70.3075 kg

DRUGS (1)
  1. AVELOX [Suspect]
     Indication: SINUSITIS
     Dosage: 1 PILL 1 TIME EACH DAY PO
     Route: 048
     Dates: start: 20090413, end: 20090418

REACTIONS (9)
  - ANXIETY [None]
  - ARTHRALGIA [None]
  - ERYTHEMA [None]
  - FEELING HOT [None]
  - INFLUENZA LIKE ILLNESS [None]
  - INSOMNIA [None]
  - PHOTOSENSITIVITY REACTION [None]
  - TINNITUS [None]
  - VISION BLURRED [None]
